FAERS Safety Report 11288389 (Version 1)
Quarter: 2015Q3

REPORT INFORMATION
  Report Type: Spontaneous
  Country: US (occurrence: US)
  Receive Date: 20150721
  Receipt Date: 20150721
  Transmission Date: 20151125
  Serious: No
  Sender: FDA-Public Use
  Company Number: US-UNITED THERAPEUTICS-UNT-2015-002732

PATIENT
  Sex: Female
  Weight: 131.97 kg

DRUGS (2)
  1. REMODULIN [Suspect]
     Active Substance: TREPROSTINIL
     Indication: PULMONARY ARTERIAL HYPERTENSION
     Dosage: 0.010 ?G/KG/MIN, CONTINUING
     Route: 058
     Dates: start: 20141027
  2. REVATIO [Concomitant]
     Active Substance: SILDENAFIL CITRATE
     Indication: PRODUCT USED FOR UNKNOWN INDICATION

REACTIONS (7)
  - Headache [Unknown]
  - Cyst [Unknown]
  - Infusion site pain [Not Recovered/Not Resolved]
  - Chills [Unknown]
  - Infusion site haematoma [Unknown]
  - Infusion site oedema [Unknown]
  - Infusion site erythema [Unknown]
